FAERS Safety Report 9496891 (Version 1)
Quarter: 2013Q3

REPORT INFORMATION
  Report Type: Spontaneous
  Country: GB (occurrence: None)
  Receive Date: 20130830
  Receipt Date: 20130830
  Transmission Date: 20140515
  Serious: Yes (Other)
  Sender: FDA-Public Use
  Company Number: AUR-APL-2013-06993

PATIENT
  Age: 54 Year
  Sex: Male
  Weight: 96.2 kg

DRUGS (5)
  1. RIBAVIRIN (RIBAVIRIN) [Suspect]
     Indication: HEPATITIS C
     Dosage: 400 MG (200 MG, 2 IN 1 D), ORAL
     Route: 048
  2. PEGASYS [Suspect]
     Indication: HEPATITIS C
     Route: 058
     Dates: start: 20130507
  3. AMLODIPINE (AMLODIPINE) [Concomitant]
  4. LOSARTAN (LOSARTAN) [Concomitant]
  5. METFORMIN (METFORMIN) [Concomitant]

REACTIONS (4)
  - Sensory loss [None]
  - Penis disorder [None]
  - Hypoaesthesia [None]
  - Genital hypoaesthesia [None]
